FAERS Safety Report 6264008-6 (Version None)
Quarter: 2009Q3

REPORT INFORMATION
  Report Type: 
  Country: None (occurrence: None)
  Receive Date: 20090701
  Receipt Date: 20090515
  Transmission Date: 20100115
  Serious: Yes (Other)
  Sender: FDA-Public Use
  Company Number: 188464USA

PATIENT
  Age: 59 Year
  Sex: Female

DRUGS (3)
  1. LAMOTRIGINE [Suspect]
     Indication: BIPOLAR DISORDER
     Dosage: ORAL
     Route: 048
     Dates: start: 20080801
  2. ARIPIPRAZOLE [Suspect]
     Indication: BIPOLAR DISORDER
  3. QUETIAPINE FUMARATE [Concomitant]

REACTIONS (6)
  - ABNORMAL BEHAVIOUR [None]
  - AFFECTIVE DISORDER [None]
  - DEPRESSION [None]
  - HYPOMANIA [None]
  - IRRITABILITY [None]
  - SUICIDAL IDEATION [None]
